FAERS Safety Report 10249101 (Version 1)
Quarter: 2014Q2

REPORT INFORMATION
  Report Type: Spontaneous
  Country: US (occurrence: None)
  Receive Date: 20140522
  Receipt Date: 20140522
  Transmission Date: 20141212
  Serious: No
  Sender: FDA-Public Use
  Company Number: 1000054143

PATIENT
  Age: 73 Year
  Sex: Female

DRUGS (3)
  1. TUDORZA PRESSAIR [Suspect]
     Indication: CHRONIC OBSTRUCTIVE PULMONARY DISEASE
     Dosage: 800 UG (400 UG, 2 IN 1 D)
     Dates: start: 20140124
  2. DALIRESP (ROFLUMILAST) (500 MICROGRAM, TABLETS) [Concomitant]
  3. SYMBICORT (BUDESONIDE W/FORMOTEROL FUMARATE) [Concomitant]

REACTIONS (1)
  - Cough [None]
